FAERS Safety Report 10137546 (Version 1)
Quarter: 2014Q2

REPORT INFORMATION
  Report Type: Spontaneous
  Country: US (occurrence: US)
  Receive Date: 20140429
  Receipt Date: 20140429
  Transmission Date: 20141212
  Serious: Yes (Other)
  Sender: FDA-Public Use
  Company Number: US-BAYER-2014-059766

PATIENT
  Age: 32 Year
  Sex: Female

DRUGS (16)
  1. YAZ [Suspect]
     Indication: DYSMENORRHOEA
     Dosage: UNK
     Dates: start: 200711, end: 200808
  2. YAZ [Suspect]
     Indication: LIBIDO DECREASED
  3. ORTHO TRI-CYCLEN LO [Suspect]
     Dosage: UNK
     Dates: start: 200903, end: 20090403
  4. FERROUS GLUCONATE [Concomitant]
     Dosage: 300 MG, QD
  5. TRAMADOL [Concomitant]
     Dosage: 50 MG, UNK
  6. PROMETHAZINE - CODEINE [CODEINE PHOSPHATE,PROMETHAZINE HYDROCHLORI [Concomitant]
     Indication: COUGH
     Dosage: 6/25-10 MG/5 ML; TAKE 1-2 TSP (TEASPOONS) AT BEDTIME AS NEEDED
  7. PHENTERMINE HYDROCHLORIDE [Concomitant]
     Dosage: 37.5 MG, EVERY MORNING BEFORE BREAKFAST
  8. AZITHROMYCIN [Concomitant]
     Dosage: 250 MG, TAKE 2 TABLETS DAY 1 THEN 1 TABLET A DAY FOR 4 DAYS
  9. PREDNISONE [Concomitant]
     Dosage: 20 MG, 2 TABLETS DAILY FOR 2 DAYS, THEN 1 DAILY FOR 3 DAYS
  10. PROAIR HFA [Concomitant]
     Dosage: 108 MCG; INHALE 1 TO 2 PUFFS EVERY 4 TO 6 HOURS AS NEEDED
  11. FLAGYL [Concomitant]
     Dosage: 500 MG, 500 MG; 1 TABLET TWICE DAILY FOR 10 DAYS
  12. ALBUTEROL [Concomitant]
  13. ATROVENT [Concomitant]
  14. LORATAB [Concomitant]
  15. ORTHO TRI-CYCLEN [Concomitant]
     Dosage: UNK
  16. TRIPHASIL [Concomitant]

REACTIONS (2)
  - Deep vein thrombosis [None]
  - Deep vein thrombosis [None]
